FAERS Safety Report 4784453-5 (Version None)
Quarter: 2005Q3

REPORT INFORMATION
  Report Type: 
  Country: None (occurrence: None)
  Receive Date: 20050929
  Receipt Date: 20050929
  Transmission Date: 20060218
  Serious: Yes (Disabling)
  Sender: FDA-Public Use
  Company Number: None

PATIENT
  Age: 52 Year
  Sex: Female
  Weight: 52.1637 kg

DRUGS (2)
  1. PREDNISONE [Suspect]
     Indication: SINUS DISORDER
     Dosage: 2 X DAY
  2. PREDNISONE [Suspect]
     Dosage: 5 MONTHS OUT OF A YEAR

REACTIONS (2)
  - CATARACT [None]
  - GLAUCOMA [None]
